FAERS Safety Report 18569912 (Version 4)
Quarter: 2021Q1

REPORT INFORMATION
  Report Type: Report from Study
  Country: US (occurrence: US)
  Receive Date: 20201202
  Receipt Date: 20210119
  Transmission Date: 20210419
  Serious: Yes (Hospitalization, Other)
  Sender: FDA-Public Use
  Company Number: US-BRISTOL-MYERS SQUIBB COMPANY-BMS-2020-100453

PATIENT
  Age: 54 Year
  Sex: Female
  Weight: 58.8 kg

DRUGS (2)
  1. NIVOLUMAB [Suspect]
     Active Substance: NIVOLUMAB
     Indication: SMALL CELL LUNG CANCER
     Dosage: 200 MILLIGRAM, Q4WK
     Route: 042
     Dates: start: 20200826, end: 20201120
  2. RUCAPARIB [Suspect]
     Active Substance: RUCAPARIB
     Indication: SMALL CELL LUNG CANCER
     Dosage: 600 MILLIGRAM, BID
     Route: 048
     Dates: start: 20200826, end: 20201120

REACTIONS (7)
  - Electrolyte imbalance [Unknown]
  - Pneumonia [Unknown]
  - Metabolic encephalopathy [Unknown]
  - Pancytopenia [Unknown]
  - Sepsis [Unknown]
  - Clostridium colitis [Unknown]
  - Thrombocytopenia [Unknown]

NARRATIVE: CASE EVENT DATE: 20201120
